FAERS Safety Report 25826833 (Version 1)
Quarter: 2025Q3

REPORT INFORMATION
  Report Type: Report from Study
  Country: US (occurrence: US)
  Receive Date: 20250920
  Receipt Date: 20250920
  Transmission Date: 20251021
  Serious: Yes (Other)
  Sender: AUROBINDO
  Company Number: US-AUROBINDO-AUR-APL-2025-046860

PATIENT

DRUGS (1)
  1. POMALIDOMIDE [Suspect]
     Active Substance: POMALIDOMIDE
     Indication: Hereditary haemorrhagic telangiectasia
     Route: 048

REACTIONS (1)
  - Oedema [Unknown]
